FAERS Safety Report 18500399 (Version 1)
Quarter: 2020Q4

REPORT INFORMATION
  Report Type: Spontaneous
  Country: DE (occurrence: DE)
  Receive Date: 20201113
  Receipt Date: 20201113
  Transmission Date: 20210114
  Serious: Yes (Other)
  Sender: FDA-Public Use
  Company Number: DE-ALKEM LABORATORIES LIMITED-DE-ALKEM-2020-07935

PATIENT
  Age: 80 Year
  Sex: Male
  Weight: 72 kg

DRUGS (3)
  1. TILIDIN HEXAL COMP [Concomitant]
     Indication: PRODUCT USED FOR UNKNOWN INDICATION
     Dosage: UNK UNK, DAILY (EVERY 1 DAY)
     Route: 065
     Dates: start: 20200810, end: 20200811
  2. PREGABALIN. [Suspect]
     Active Substance: PREGABALIN
     Indication: PRODUCT USED FOR UNKNOWN INDICATION
     Dosage: UNK, EVERY 1 DAY
     Route: 065
     Dates: start: 20200803, end: 20200811
  3. ZOSTERGALEN [Suspect]
     Active Substance: BRIVUDINE
     Indication: PRODUCT USED FOR UNKNOWN INDICATION
     Dosage: 125 MG, 1X/DAY EVERY 1 DAY
     Route: 065
     Dates: start: 20200803, end: 20200809

REACTIONS (4)
  - Irritability [Not Recovered/Not Resolved]
  - Delirium [Not Recovered/Not Resolved]
  - Movement disorder [Not Recovered/Not Resolved]
  - Speech disorder [Recovered/Resolved]

NARRATIVE: CASE EVENT DATE: 20200810
